FAERS Safety Report 8313593 (Version 6)
Quarter: 2013Q2

REPORT INFORMATION
  Report Type: Report from Study
  Country: NL (occurrence: NL)
  Receive Date: 20111228
  Receipt Date: 20130404
  Transmission Date: 20140414
  Serious: Yes (Hospitalization)
  Sender: FDA-Public Use
  Company Number: NL-ROCHE-1011138

PATIENT
  Age: 61 Year
  Sex: Female
  Weight: 64 kg

DRUGS (17)
  1. RITUXIMAB [Suspect]
     Indication: DIFFUSE LARGE B-CELL LYMPHOMA
     Dosage: LAST DOSE PRIOR TO SAE: 19/SEP/2011
     Route: 042
     Dates: start: 20110919
  2. PREDNISONE [Suspect]
     Indication: DIFFUSE LARGE B-CELL LYMPHOMA
     Dosage: 2X50 MG, LAST DOSE PRIOR TO SAE: 23/SEP/2011
     Route: 048
     Dates: start: 20110919
  3. CYCLOPHOSPHAMIDE [Suspect]
     Indication: DIFFUSE LARGE B-CELL LYMPHOMA
     Dosage: LAST DOSE PRIOR TO SAE: 19/SEP/2011
     Route: 042
     Dates: start: 20110919
  4. DOXORUBICIN [Suspect]
     Indication: DIFFUSE LARGE B-CELL LYMPHOMA
     Dosage: LAST DOSE PRIOR TO SAE: 19/SEP/2011
     Route: 042
     Dates: start: 20110919
  5. VINCRISTINE [Suspect]
     Indication: DIFFUSE LARGE B-CELL LYMPHOMA
     Route: 042
     Dates: start: 20110822
  6. G-CSF [Suspect]
     Indication: DIFFUSE LARGE B-CELL LYMPHOMA
     Dosage: LAST DOSE PRIOR TO SAE: 20/SEP/2011
     Route: 058
     Dates: start: 20110920
  7. VINBLASTINE SULFATE [Suspect]
     Indication: DIFFUSE LARGE B-CELL LYMPHOMA
     Dosage: LAST DOSE PRIOR TO SAE: 19/SEP/2011
     Route: 042
     Dates: start: 20110919
  8. VALACICLOVIR [Concomitant]
     Indication: PROPHYLAXIS
     Dosage: 2X500 MG
     Route: 048
     Dates: start: 20110530, end: 20111107
  9. COTRIMOXIN [Concomitant]
     Indication: PROPHYLAXIS
     Route: 048
     Dates: start: 20110530, end: 20111107
  10. ISONIAZIDE [Concomitant]
     Indication: PROPHYLAXIS
     Route: 048
     Dates: start: 20110530, end: 20111107
  11. FUROSEMIDE [Concomitant]
     Indication: CARDIAC FAILURE
     Dosage: LAST DOSE PRIOR TO EVENT 09/FEB/2012
     Route: 048
     Dates: start: 20111123, end: 20120224
  12. SPIRONOLACTON [Concomitant]
     Indication: CARDIAC FAILURE
     Dosage: LAST DOSE PRIOR TO EVENT 09/FEB/2012
     Route: 048
     Dates: start: 20111219, end: 20120224
  13. SPIRONOLACTON [Concomitant]
     Dosage: LAST DOSE PRIOR TO EVENT 09/MAY/2012
     Route: 065
     Dates: start: 20120224
  14. LISINOPRIL [Concomitant]
     Indication: CARDIAC FAILURE
     Dosage: LAST DOSE PRIOR TO EVENT 09/FEB/2012
     Route: 048
     Dates: start: 20111123, end: 20120224
  15. LISINOPRIL [Concomitant]
     Dosage: LAST DOSE PRIOR TO EVENT 09/MAY/2012
     Route: 048
     Dates: start: 20120224
  16. BISOPROLOL [Concomitant]
     Indication: CARDIAC FAILURE
     Route: 048
     Dates: start: 20120218, end: 20120224
  17. BISOPROLOL [Concomitant]
     Dosage: LAST DOSE PRIOR TO EVENT 09/MAY/2012
     Route: 048
     Dates: start: 20120224

REACTIONS (3)
  - Cardiomyopathy [Recovered/Resolved with Sequelae]
  - Cardiac failure [Recovered/Resolved with Sequelae]
  - Cardiac failure [Recovered/Resolved with Sequelae]
